FAERS Safety Report 7835783-1 (Version None)
Quarter: 2011Q4

REPORT INFORMATION
  Report Type: 
  Country: None (occurrence: None)
  Receive Date: 20111024
  Receipt Date: 20111011
  Transmission Date: 20120403
  Serious: Yes (Other)
  Sender: FDA-Public Use
  Company Number: US-BAYER-201018551NA

PATIENT
  Age: 39 Year
  Sex: Female
  Weight: 111.11 kg

DRUGS (5)
  1. EFFEXOR XR [Concomitant]
     Dosage: UNK UNK, QD
  2. YASMIN [Suspect]
     Indication: DYSMENORRHOEA
     Dosage: UNK UNK, QD
     Route: 048
  3. ACIPHEX [Concomitant]
  4. FUROSEMIDE [Concomitant]
     Dosage: UNK
     Route: 048
  5. NAPROXEN [Concomitant]

REACTIONS (6)
  - PAIN [None]
  - PAIN IN EXTREMITY [None]
  - OEDEMA PERIPHERAL [None]
  - NEPHROLITHIASIS [None]
  - MENORRHAGIA [None]
  - THROMBOPHLEBITIS SUPERFICIAL [None]
